FAERS Safety Report 7095598-1 (Version None)
Quarter: 2010Q4

REPORT INFORMATION
  Report Type: 
  Country: None (occurrence: None)
  Receive Date: 20101111
  Receipt Date: 20101029
  Transmission Date: 20110411
  Serious: Yes (Hospitalization, Other)
  Sender: FDA-Public Use
  Company Number: JP-JNJFOC-20101102943

PATIENT
  Age: 42 Year
  Sex: Male

DRUGS (4)
  1. HALOPERIDOL [Suspect]
     Indication: SCHIZOPHRENIA
     Route: 065
  2. HALOPERIDOL DECANOATE [Suspect]
     Indication: SCHIZOPHRENIA
     Route: 065
  3. CHLORPROMAZINE [Suspect]
     Indication: SCHIZOPHRENIA
     Route: 065
  4. BIPERIDEN HYDROCHLORIDE TAB [Suspect]
     Indication: SCHIZOPHRENIA
     Route: 065

REACTIONS (5)
  - BLOOD SODIUM DECREASED [None]
  - DRY MOUTH [None]
  - FALL [None]
  - RESTLESS LEGS SYNDROME [None]
  - WATER INTOXICATION [None]
